FAERS Safety Report 7873302-4 (Version None)
Quarter: 2011Q4

REPORT INFORMATION
  Report Type: 
  Country: None (occurrence: None)
  Receive Date: 20111030
  Receipt Date: 20110503
  Transmission Date: 20120403
  Serious: No
  Sender: FDA-Public Use
  Company Number: US-AMGEN-USASP2011022846

PATIENT
  Age: 37 Year
  Sex: Female

DRUGS (1)
  1. ENBREL [Suspect]
     Indication: RHEUMATOID ARTHRITIS
     Dosage: 50 MG, QWK
     Dates: start: 20050101, end: 20110428

REACTIONS (9)
  - ARTHRALGIA [None]
  - FATIGUE [None]
  - DYSPNOEA [None]
  - BACK PAIN [None]
  - HEART RATE DECREASED [None]
  - RASH [None]
  - NECK PAIN [None]
  - DECREASED APPETITE [None]
  - DRUG INEFFECTIVE [None]
